FAERS Safety Report 5147799-7 (Version None)
Quarter: 2006Q4

REPORT INFORMATION
  Report Type: 
  Country: None (occurrence: None)
  Receive Date: 20061107
  Receipt Date: 20061107
  Transmission Date: 20070319
  Serious: Yes (Hospitalization)
  Sender: FDA-Public Use
  Company Number: None

PATIENT
  Age: 77 Year
  Sex: Female
  Weight: 39.9165 kg

DRUGS (8)
  1. OXALIPLATIN [Suspect]
     Indication: RECTAL CANCER
     Dosage: 60 MG/M2 WEEKLY IV DRIP
     Route: 041
     Dates: start: 20061002, end: 20061023
  2. SYNTHROID [Concomitant]
  3. ALBUTEROL [Concomitant]
  4. REGLAN [Concomitant]
  5. FLUOROURACIL [Concomitant]
  6. DOLASETRON [Concomitant]
  7. LORAZEPAM [Concomitant]
  8. PROCHLORPERAZINE [Concomitant]

REACTIONS (8)
  - ABDOMINAL PAIN [None]
  - DIARRHOEA [None]
  - FREQUENT BOWEL MOVEMENTS [None]
  - HYPOTENSION [None]
  - NAUSEA [None]
  - PELVIC PAIN [None]
  - RESPIRATORY DISTRESS [None]
  - VOMITING [None]
